FAERS Safety Report 9956700 (Version 1)
Quarter: 2014Q1

REPORT INFORMATION
  Report Type: Report from Study
  Country: US (occurrence: US)
  Receive Date: 20140304
  Receipt Date: 20140304
  Transmission Date: 20141002
  Serious: No
  Sender: FDA-Public Use
  Company Number: US-ABBVIE-13P-163-1092916-00

PATIENT
  Age: 54 Year
  Sex: Female
  Weight: 89.44 kg

DRUGS (5)
  1. HUMIRA [Suspect]
     Indication: CROHN^S DISEASE
     Route: 058
     Dates: start: 201304
  2. WELLBUTRIN [Concomitant]
     Indication: DEPRESSION
  3. CYMBALTA [Concomitant]
     Indication: DEPRESSION
  4. HYZAAR [Concomitant]
     Indication: HYPERTENSION
  5. PERCOCET [Concomitant]
     Indication: BACK PAIN

REACTIONS (2)
  - Muscle tightness [Not Recovered/Not Resolved]
  - Muscle spasms [Not Recovered/Not Resolved]
